FAERS Safety Report 4710053-9 (Version None)
Quarter: 2005Q3

REPORT INFORMATION
  Report Type: 
  Country: None (occurrence: None)
  Receive Date: 20050707
  Receipt Date: 52000625
  Transmission Date: 20060218
  Serious: Yes (Hospitalization)
  Sender: FDA-Public Use
  Company Number: 200506IM000254

PATIENT
  Age: 52 Year
  Sex: Male
  Weight: 103.8737 kg

DRUGS (6)
  1. INFERGEN [Suspect]
     Indication: HEPATITIS C
     Dosage: 25 UG, QD, SUBCUTANEOUS
     Route: 058
     Dates: start: 20050609, end: 20050624
  2. RIBAVIRIN [Suspect]
     Dosage: 1200 MG, QD, ORAL
     Route: 048
     Dates: start: 20050609, end: 20050624
  3. ZANTAC [Concomitant]
  4. DILANTIN [Concomitant]
  5. MECLIZINE [Concomitant]
  6. ZOLOFT [Concomitant]

REACTIONS (6)
  - CONDITION AGGRAVATED [None]
  - CONVULSION [None]
  - DEPRESSION [None]
  - MOOD ALTERED [None]
  - NAUSEA [None]
  - RASH ERYTHEMATOUS [None]
